FAERS Safety Report 5776735-5 (Version None)
Quarter: 2008Q2

REPORT INFORMATION
  Report Type: 
  Country: None (occurrence: None)
  Receive Date: 20080618
  Receipt Date: 20080312
  Transmission Date: 20081010
  Serious: No
  Sender: FDA-Public Use
  Company Number: US-ASTRAZENECA-2008UW04980

PATIENT
  Age: 76 Year
  Sex: Female
  Weight: 81.6 kg

DRUGS (5)
  1. SYMBICORT [Suspect]
     Indication: WHEEZING
     Dosage: 160 UG; 2 PUFFS BID
     Route: 055
     Dates: start: 20080308
  2. SYMBICORT [Suspect]
     Indication: DYSPNOEA
     Dosage: 160 UG; 2 PUFFS BID
     Route: 055
     Dates: start: 20080308
  3. ZITHROMAX [Concomitant]
  4. ATENOLOL [Concomitant]
     Route: 048
  5. PREDNISONE TAB [Concomitant]

REACTIONS (1)
  - CONDITION AGGRAVATED [None]
